FAERS Safety Report 23486953 (Version 3)
Quarter: 2025Q4

REPORT INFORMATION
  Report Type: Spontaneous
  Country: JP (occurrence: JP)
  Receive Date: 20240206
  Receipt Date: 20251010
  Transmission Date: 20260118
  Serious: Yes (Other)
  Sender: BRISTOL-MYERS SQUIBB COMPANY
  Company Number: JP-BRISTOL-MYERS SQUIBB COMPANY-2023-012315

PATIENT
  Age: 69 Year
  Sex: Male
  Weight: 58.2 kg

DRUGS (19)
  1. YERVOY [Suspect]
     Active Substance: IPILIMUMAB
     Indication: Pleural mesothelioma malignant
     Dates: start: 20220721, end: 20220721
  2. YERVOY [Suspect]
     Active Substance: IPILIMUMAB
     Dates: start: 20220901, end: 20220901
  3. YERVOY [Suspect]
     Active Substance: IPILIMUMAB
     Dates: start: 20221013, end: 20221013
  4. YERVOY [Suspect]
     Active Substance: IPILIMUMAB
     Dates: start: 20221201, end: 20221201
  5. YERVOY [Suspect]
     Active Substance: IPILIMUMAB
  6. OPDIVO [Suspect]
     Active Substance: NIVOLUMAB
     Indication: Pleural mesothelioma malignant
     Dates: start: 20220721, end: 20220721
  7. OPDIVO [Suspect]
     Active Substance: NIVOLUMAB
     Dates: start: 20220810, end: 20220810
  8. OPDIVO [Suspect]
     Active Substance: NIVOLUMAB
     Dates: start: 20220901, end: 20220901
  9. OPDIVO [Suspect]
     Active Substance: NIVOLUMAB
     Dates: start: 20220922, end: 20220922
  10. OPDIVO [Suspect]
     Active Substance: NIVOLUMAB
     Dates: start: 20221013, end: 20221013
  11. OPDIVO [Suspect]
     Active Substance: NIVOLUMAB
     Dates: start: 20221110, end: 20221110
  12. OPDIVO [Suspect]
     Active Substance: NIVOLUMAB
     Dates: start: 20221201, end: 20221201
  13. OPDIVO [Suspect]
     Active Substance: NIVOLUMAB
  14. OPDIVO [Suspect]
     Active Substance: NIVOLUMAB
  15. REBAMIPIDE [Concomitant]
     Active Substance: REBAMIPIDE
     Indication: Mucosal disorder
  16. LOXOPROFEN [Concomitant]
     Active Substance: LOXOPROFEN
     Indication: Fracture pain
  17. OLOPATADINE [Concomitant]
     Active Substance: OLOPATADINE
     Indication: Product used for unknown indication
  18. BETAMETHASONE DIPROPIONATE [Concomitant]
     Active Substance: BETAMETHASONE DIPROPIONATE
     Indication: Product used for unknown indication
  19. KETOPROFEN [Concomitant]
     Active Substance: KETOPROFEN
     Indication: Product used for unknown indication

REACTIONS (3)
  - Immune-mediated arthritis [Recovering/Resolving]
  - Iridocyclitis [Recovered/Resolved]
  - Malignant neoplasm progression [Unknown]

NARRATIVE: CASE EVENT DATE: 20220810
